FAERS Safety Report 17175205 (Version 1)
Quarter: 2019Q4

REPORT INFORMATION
  Report Type: Spontaneous
  Country: US (occurrence: US)
  Receive Date: 20191219
  Receipt Date: 20191219
  Transmission Date: 20200122
  Serious: No
  Sender: FDA-Public Use
  Company Number: US-UCBSA-112130

PATIENT
  Age: 59 Year
  Sex: Female
  Weight: 91.1 kg

DRUGS (20)
  1. MINOCYCLINE [Concomitant]
     Active Substance: MINOCYCLINE HYDROCHLORIDE
     Dosage: 100MG STRENGTH
     Dates: start: 20110801
  2. VITAMIN B [Concomitant]
     Active Substance: VITAMIN B
     Dosage: 25MG STRENGTH
  3. PROPRANOLOL [Concomitant]
     Active Substance: PROPRANOLOL HYDROCHLORIDE
     Dosage: 10MG STRENGTH DAILY
     Dates: end: 20130225
  4. VITAMIN D [Concomitant]
     Active Substance: VITAMIN D NOS
     Dosage: 3000 MG, ONCE DAILY (QD)
  5. ENBREL [Concomitant]
     Active Substance: ETANERCEPT
     Dates: end: 20101021
  6. METHOTREXATE. [Concomitant]
     Active Substance: METHOTREXATE
     Dosage: 2.5MG, WEEKLY
     Dates: end: 20110125
  7. PREDNISONE. [Concomitant]
     Active Substance: PREDNISONE
     Dosage: 5MG STRENGTH, DAILY
  8. MULTI VITAMIN [Concomitant]
     Active Substance: VITAMINS
     Dosage: UNKNOWN DOSE
  9. LYSINE [Concomitant]
     Active Substance: LYSINE
     Dosage: UNKNOWN DOSE
  10. FOLIC ACID. [Concomitant]
     Active Substance: FOLIC ACID
     Dosage: 1MG STRENGTH, DAILY
     Dates: end: 20110125
  11. FISH OIL [Concomitant]
     Active Substance: FISH OIL
     Dosage: UNKNOWN DOSE
  12. CIMZIA [Suspect]
     Active Substance: CERTOLIZUMAB PEGOL
     Indication: RHEUMATOID ARTHRITIS
     Dosage: 200 MG, EV 2 WEEKS(QOW)
     Route: 058
     Dates: start: 20091030, end: 20140115
  13. AMITRIPTYLIN [Concomitant]
     Active Substance: AMITRIPTYLINE
     Dosage: 50MG STRENGTH, ONCE BED TIME
     Dates: start: 20111201
  14. LEVOTHYROXIN [Concomitant]
     Active Substance: LEVOTHYROXINE
     Dosage: 25MCG STRENGTH, UNKNOWN DOSE DAILY
  15. HCTZ/TRIAMT [Concomitant]
     Dosage: DAILY
  16. CIMZIA [Suspect]
     Active Substance: CERTOLIZUMAB PEGOL
     Indication: RHEUMATOID ARTHRITIS
     Dosage: 200MG/ML KIT; MONTHLY
     Dates: start: 20110225
  17. CLONAZEPAM. [Concomitant]
     Active Substance: CLONAZEPAM
     Dosage: 0.5MG,DAILY
     Dates: start: 20111129
  18. PROZAC [Concomitant]
     Active Substance: FLUOXETINE HYDROCHLORIDE
     Dosage: 20MG STRENGTH, DAILY
     Dates: start: 20111129
  19. ENBREL [Concomitant]
     Active Substance: ETANERCEPT
     Dosage: 50MG/ML 3.92ML/PKG
     Dates: start: 20110406
  20. EFFEXOR [Concomitant]
     Active Substance: VENLAFAXINE HYDROCHLORIDE
     Dosage: 75MG STREGTH
     Dates: end: 20111129

REACTIONS (1)
  - Drug ineffective [Recovered/Resolved]

NARRATIVE: CASE EVENT DATE: 20140115
